FAERS Safety Report 6793380-3 (Version None)
Quarter: 2010Q2

REPORT INFORMATION
  Report Type: 
  Country: None (occurrence: None)
  Receive Date: 20100624
  Receipt Date: 20100125
  Transmission Date: 20101027
  Serious: Yes (Hospitalization, Other)
  Sender: FDA-Public Use
  Company Number: US-MYLANLABS-2010S1000826

PATIENT
  Age: 49 Year
  Sex: Female

DRUGS (2)
  1. CLOZAPINE [Suspect]
     Indication: SCHIZOPHRENIA
     Route: 048
     Dates: start: 20100106, end: 20100113
  2. CLOZAPINE [Suspect]
     Route: 048
     Dates: start: 20100114, end: 20100121

REACTIONS (1)
  - GRANULOCYTOPENIA [None]
